FAERS Safety Report 12572863 (Version 2)
Quarter: 2016Q3

REPORT INFORMATION
  Report Type: Spontaneous
  Country: US (occurrence: US)
  Receive Date: 20160720
  Receipt Date: 20160722
  Transmission Date: 20161109
  Serious: Yes (Other)
  Sender: FDA-Public Use
  Company Number: US-JNJFOC-20160710159

PATIENT
  Age: 7 Decade
  Sex: Female
  Weight: 49.44 kg

DRUGS (2)
  1. ZYRTEC [Suspect]
     Active Substance: CETIRIZINE HYDROCHLORIDE
     Indication: MULTIPLE ALLERGIES
     Dosage: 1 TABLET AS NEEDED
     Route: 048
  2. ZYRTEC [Suspect]
     Active Substance: CETIRIZINE HYDROCHLORIDE
     Route: 048

REACTIONS (9)
  - Loss of consciousness [Recovered/Resolved]
  - Swollen tongue [Unknown]
  - Dehydration [Unknown]
  - Urinary tract infection [Unknown]
  - Abdominal pain upper [Unknown]
  - Eye swelling [Unknown]
  - Hypersensitivity [Unknown]
  - Swelling face [Unknown]
  - Haematemesis [Unknown]
